FAERS Safety Report 18239229 (Version 4)
Quarter: 2023Q1

REPORT INFORMATION
  Report Type: Report from Study
  Country: US (occurrence: US)
  Receive Date: 20200907
  Receipt Date: 20230203
  Transmission Date: 20230418
  Serious: Yes (Other)
  Sender: FDA-Public Use
  Company Number: NVSC2020US245286

PATIENT
  Sex: Female

DRUGS (3)
  1. COSENTYX [Suspect]
     Active Substance: SECUKINUMAB
     Indication: Psoriatic arthropathy
     Dosage: UNK
     Route: 065
  2. COSENTYX [Suspect]
     Active Substance: SECUKINUMAB
     Dosage: 150 MG, QMO
     Route: 058
  3. COSENTYX [Suspect]
     Active Substance: SECUKINUMAB
     Dosage: 300 MG, QMO (300MG SQ EVERY 4 WEEKS)
     Route: 058

REACTIONS (6)
  - Psoriatic arthropathy [Unknown]
  - Headache [Unknown]
  - Fatigue [Unknown]
  - Pain [Unknown]
  - Tension headache [Unknown]
  - Drug ineffective [Unknown]
